FAERS Safety Report 12925211 (Version 3)
Quarter: 2019Q3

REPORT INFORMATION
  Report Type: Spontaneous
  Country: US (occurrence: US)
  Receive Date: 20161108
  Receipt Date: 20190819
  Transmission Date: 20191004
  Serious: No
  Sender: FDA-Public Use
  Company Number: US-SA-2016SA143375

PATIENT
  Age: 78 Year
  Sex: Female

DRUGS (2)
  1. PRALUENT [Suspect]
     Active Substance: ALIROCUMAB
     Indication: HYPERLIPIDAEMIA
     Dosage: 150 MG,QOW
     Route: 065
     Dates: start: 201605, end: 20190808
  2. PRALUENT [Suspect]
     Active Substance: ALIROCUMAB
     Indication: BLOOD CHOLESTEROL

REACTIONS (11)
  - Chest pain [Not Recovered/Not Resolved]
  - Aphthous ulcer [Not Recovered/Not Resolved]
  - Sinus disorder [Not Recovered/Not Resolved]
  - Salivary gland pain [Not Recovered/Not Resolved]
  - Pain [Unknown]
  - Influenza like illness [Not Recovered/Not Resolved]
  - Cerumen impaction [Not Recovered/Not Resolved]
  - Pain [Not Recovered/Not Resolved]
  - Lymphadenopathy [Not Recovered/Not Resolved]
  - Neck pain [Not Recovered/Not Resolved]
  - Rhinorrhoea [Unknown]

NARRATIVE: CASE EVENT DATE: 2016
